FAERS Safety Report 5130146-4 (Version None)
Quarter: 2006Q4

REPORT INFORMATION
  Report Type: 
  Country: None (occurrence: None)
  Receive Date: 20061013
  Receipt Date: 20060928
  Transmission Date: 20070319
  Serious: Yes (Hospitalization)
  Sender: FDA-Public Use
  Company Number: REM_00260_2006

PATIENT
  Age: 10 Year
  Sex: Male
  Weight: 21 kg

DRUGS (5)
  1. REMODULIN [Suspect]
     Indication: PULMONARY HYPERTENSION
     Dates: start: 20060421
  2. TRACLEER [Concomitant]
  3. DIGOXIN [Concomitant]
  4. ALDACTONE [Concomitant]
  5. LASIX [Concomitant]

REACTIONS (2)
  - CENTRAL LINE INFECTION [None]
  - KLEBSIELLA INFECTION [None]
